APPROVED DRUG PRODUCT: FLUOCINOLONE ACETONIDE
Active Ingredient: FLUOCINOLONE ACETONIDE
Strength: 0.025%
Dosage Form/Route: CREAM;TOPICAL
Application: A040042 | Product #001
Applicant: SUN PHARMA CANADA INC
Approved: Oct 31, 1994 | RLD: No | RS: No | Type: DISCN